FAERS Safety Report 5706928-4 (Version None)
Quarter: 2008Q2

REPORT INFORMATION
  Report Type: 
  Country: None (occurrence: None)
  Receive Date: 20080416
  Receipt Date: 20080409
  Transmission Date: 20081010
  Serious: Yes (Hospitalization)
  Sender: FDA-Public Use
  Company Number: CA-ASTRAZENECA-2008UW07127

PATIENT
  Age: 61 Year
  Sex: Female

DRUGS (2)
  1. CRESTOR [Suspect]
     Indication: DYSLIPIDAEMIA
     Route: 048
     Dates: start: 20080326
  2. CRESTOR [Suspect]
     Route: 048

REACTIONS (2)
  - BACK PAIN [None]
  - BLOOD URINE PRESENT [None]
